FAERS Safety Report 10234431 (Version 1)
Quarter: 2014Q2

REPORT INFORMATION
  Report Type: Spontaneous
  Country: TW (occurrence: TW)
  Receive Date: 20140613
  Receipt Date: 20140613
  Transmission Date: 20141212
  Serious: Yes (Death, Other)
  Sender: FDA-Public Use
  Company Number: PHHY2014TW068710

PATIENT
  Age: 75 Year
  Sex: Female

DRUGS (1)
  1. CEFADROXIL [Suspect]
     Indication: URINARY TRACT INFECTION
     Route: 062

REACTIONS (2)
  - Respiratory failure [Fatal]
  - Toxic epidermal necrolysis [Unknown]
